FAERS Safety Report 15837907 (Version 2)
Quarter: 2019Q1

REPORT INFORMATION
  Report Type: Report from Study
  Country: US (occurrence: US)
  Receive Date: 20190117
  Receipt Date: 20190306
  Transmission Date: 20190417
  Serious: Yes (Other)
  Sender: FDA-Public Use
  Company Number: US-SA-2018SA327304

PATIENT
  Age: 67 Year
  Sex: Female

DRUGS (2)
  1. ALEMTUZUMAB [Suspect]
     Active Substance: ALEMTUZUMAB
     Indication: MULTIPLE SCLEROSIS
     Dosage: 12 MG, QD
     Route: 041
     Dates: start: 20181113, end: 20181115
  2. ALEMTUZUMAB [Suspect]
     Active Substance: ALEMTUZUMAB
     Dosage: 12 MG, QD
     Route: 041
     Dates: start: 20171113, end: 20171117

REACTIONS (12)
  - Cholecystitis [Not Recovered/Not Resolved]
  - Aphasia [Unknown]
  - Thyroxine increased [Not Recovered/Not Resolved]
  - Catheter site haemorrhage [Unknown]
  - Speech disorder [Recovered/Resolved]
  - Cholelithiasis [Not Recovered/Not Resolved]
  - Catheter site bruise [Unknown]
  - Gait disturbance [Recovered/Resolved]
  - Tri-iodothyronine decreased [Not Recovered/Not Resolved]
  - Asthenia [Recovered/Resolved]
  - Somnolence [Unknown]
  - Confusional state [Recovered/Resolved]

NARRATIVE: CASE EVENT DATE: 2018
